FAERS Safety Report 13394297 (Version 2)
Quarter: 2017Q2

REPORT INFORMATION
  Report Type: Spontaneous
  Country: PT (occurrence: PT)
  Receive Date: 20170402
  Receipt Date: 20170504
  Transmission Date: 20170830
  Serious: Yes (Other)
  Sender: FDA-Public Use
  Company Number: PT-MYLANLABS-2017M1019482

PATIENT

DRUGS (4)
  1. BEN-U-RON [Concomitant]
     Indication: EAR INFECTION
     Dosage: 1 G, QD
     Route: 048
     Dates: start: 20170314, end: 20170314
  2. KLACID [Suspect]
     Active Substance: CLARITHROMYCIN
     Indication: EAR INFECTION
     Dosage: 250 MG, UNK
     Route: 048
     Dates: start: 20170314, end: 20170314
  3. VICTAN [Concomitant]
     Active Substance: ETHYL LOFLAZEPATE
     Indication: ANXIETY
     Dosage: 1 MG, PRN
     Route: 048
  4. IBUPROFENO RATIOPHARM [Suspect]
     Active Substance: IBUPROFEN
     Indication: EAR INFECTION
     Dosage: 400 MG, TID
     Route: 048
     Dates: start: 20170313, end: 20170315

REACTIONS (5)
  - Erythema [Unknown]
  - Skin mass [Unknown]
  - Drug hypersensitivity [Unknown]
  - Adverse reaction [Unknown]
  - Skin burning sensation [Unknown]

NARRATIVE: CASE EVENT DATE: 20170314
